FAERS Safety Report 14497868 (Version 1)
Quarter: 2018Q1

REPORT INFORMATION
  Report Type: Spontaneous
  Country: JP (occurrence: JP)
  Receive Date: 20180207
  Receipt Date: 20180207
  Transmission Date: 20180509
  Serious: Yes (Other)
  Sender: FDA-Public Use
  Company Number: JP-SUCAMPO PHARMACEUTICALS INC.-SPI201701603

PATIENT
  Age: 57 Year
  Sex: Female

DRUGS (5)
  1. AMITIZA [Suspect]
     Active Substance: LUBIPROSTONE
     Indication: CONSTIPATION
     Dosage: 24 MCG, BID
     Route: 048
     Dates: start: 20171108, end: 20171109
  2. FERROMIA [Concomitant]
     Active Substance: SODIUM FERROUS CITRATE
     Indication: IRON DEFICIENCY ANAEMIA
     Dosage: 50 MG, BID
     Route: 048
     Dates: start: 20170928
  3. SELTEPNON [Concomitant]
     Active Substance: TEPRENONE
     Indication: GASTRITIS
     Dosage: 50 MG, BID
     Route: 048
     Dates: start: 20170928
  4. FESIN [Concomitant]
     Active Substance: IRON SUCROSE
     Indication: IRON DEFICIENCY ANAEMIA
     Dosage: 4 ML, UNK
     Route: 017
     Dates: start: 20170928
  5. POSTERISAN [Concomitant]
     Active Substance: LIDOCAINE
     Indication: HAEMORRHOIDS
     Dosage: UNK
     Dates: start: 20170919

REACTIONS (2)
  - Syncope [Recovered/Resolved]
  - Blood pressure decreased [Recovered/Resolved]

NARRATIVE: CASE EVENT DATE: 20171108
